FAERS Safety Report 23560655 (Version 3)
Quarter: 2024Q2

REPORT INFORMATION
  Report Type: Spontaneous
  Country: US (occurrence: US)
  Receive Date: 20240223
  Receipt Date: 20240617
  Transmission Date: 20240716
  Serious: No
  Sender: FDA-Public Use
  Company Number: US-Calliditas-2024CAL00238

PATIENT
  Age: 82 Year
  Sex: Female
  Weight: 61.5 kg

DRUGS (1)
  1. TARPEYO [Suspect]
     Active Substance: BUDESONIDE
     Indication: IgA nephropathy
     Dosage: 16 MG (4MG CAPSULES) DAILY
     Route: 048
     Dates: start: 20240201

REACTIONS (3)
  - Blood pressure increased [Unknown]
  - Peripheral swelling [Unknown]
  - Swelling [Unknown]
